FAERS Safety Report 4549216-4 (Version None)
Quarter: 2005Q1

REPORT INFORMATION
  Report Type: 
  Country: None (occurrence: None)
  Receive Date: 20041230
  Receipt Date: 20040517
  Transmission Date: 20050727
  Serious: Yes (Other)
  Sender: FDA-Public Use
  Company Number: 04-05-0722

PATIENT
  Age: 57 Year
  Sex: Female
  Weight: 89.3586 kg

DRUGS (4)
  1. CLOZAPINE [Suspect]
     Indication: BIPOLAR DISORDER
     Dosage: 150MG QD ORAL
     Route: 048
     Dates: start: 20040416, end: 20040501
  2. VALPROIC ACID [Concomitant]
  3. CARBIDOPA AND LEVODOPA [Concomitant]
  4. PAROXETINE HCL [Concomitant]

REACTIONS (1)
  - NEUTROPENIA [None]
